FAERS Safety Report 14217340 (Version 2)
Quarter: 2018Q1

REPORT INFORMATION
  Report Type: Report from Study
  Country: None (occurrence: US)
  Receive Date: 20171123
  Receipt Date: 20180105
  Transmission Date: 20180508
  Serious: Yes (Other)
  Sender: FDA-Public Use
  Company Number: US-ABBVIE-17K-163-2167262-00

PATIENT
  Age: 74 Year
  Sex: Female

DRUGS (4)
  1. ELIQUIS [Concomitant]
     Active Substance: APIXABAN
     Indication: CARDIAC ABLATION
  2. ELIQUIS [Concomitant]
     Active Substance: APIXABAN
     Indication: ATRIAL FIBRILLATION
  3. HUMIRA [Suspect]
     Active Substance: ADALIMUMAB
     Indication: PSORIASIS
     Route: 058
     Dates: start: 201703, end: 201712
  4. HUMIRA [Suspect]
     Active Substance: ADALIMUMAB
     Indication: PSORIATIC ARTHROPATHY

REACTIONS (7)
  - Joint swelling [Recovering/Resolving]
  - Traumatic haemorrhage [Recovering/Resolving]
  - Contusion [Recovering/Resolving]
  - Joint injury [Recovering/Resolving]
  - Muscle haemorrhage [Recovered/Resolved]
  - Drug ineffective [Not Recovered/Not Resolved]
  - Contusion [Unknown]

NARRATIVE: CASE EVENT DATE: 2017
